FAERS Safety Report 5363479-7 (Version None)
Quarter: 2007Q2

REPORT INFORMATION
  Report Type: 
  Country: None (occurrence: None)
  Receive Date: 20070618
  Receipt Date: 20070605
  Transmission Date: 20071010
  Serious: Yes (Hospitalization)
  Sender: FDA-Public Use
  Company Number: 2007SP002018

PATIENT
  Age: 86 Year
  Sex: Female

DRUGS (3)
  1. XOPENEX [Suspect]
     Indication: DYSPNOEA
     Dosage: Q4H; INHALATION
     Route: 055
     Dates: start: 20060101
  2. OXYGEN [Concomitant]
  3. ALBUTEROL [Concomitant]

REACTIONS (2)
  - HOSPITALISATION [None]
  - MEDICATION ERROR [None]
